FAERS Safety Report 25164509 (Version 1)
Quarter: 2025Q2

REPORT INFORMATION
  Report Type: Spontaneous
  Country: US (occurrence: US)
  Receive Date: 20250406
  Receipt Date: 20250406
  Transmission Date: 20250716
  Serious: No
  Sender: SANOFI AVENTIS
  Company Number: US-SA-2025SA097460

PATIENT
  Age: 4 Year
  Sex: Male
  Weight: 20.55 kg

DRUGS (3)
  1. DUPIXENT [Suspect]
     Active Substance: DUPILUMAB
     Indication: Eosinophilic oesophagitis
     Dosage: 200 MG, QOW
     Route: 058
     Dates: start: 20250306
  2. CLARITIN [Concomitant]
     Active Substance: LORATADINE
  3. PROBIOTIC 10 [BIFIDOBACTERIUM BIFIDUM;BIFIDOBACTERIUM LACTIS;LACTIPLAN [Concomitant]

REACTIONS (8)
  - Pain [Unknown]
  - Malaise [Unknown]
  - Psychomotor hyperactivity [Unknown]
  - Arthropod bite [Not Recovered/Not Resolved]
  - Rash macular [Not Recovered/Not Resolved]
  - Vertigo [Unknown]
  - Dizziness [Unknown]
  - Arthralgia [Unknown]

NARRATIVE: CASE EVENT DATE: 20250301
